FAERS Safety Report 24973255 (Version 1)
Quarter: 2025Q1

REPORT INFORMATION
  Report Type: Spontaneous
  Country: US (occurrence: US)
  Receive Date: 20250216
  Receipt Date: 20250216
  Transmission Date: 20250408
  Serious: No
  Sender: AMGEN
  Company Number: US-AMGEN-USASP2025027091

PATIENT
  Age: 62 Year

DRUGS (2)
  1. REPATHA [Suspect]
     Active Substance: EVOLOCUMAB
     Indication: Product used for unknown indication
     Dosage: 140 MILLIGRAM, Q2WK
     Route: 058
     Dates: start: 202412
  2. REPATHA [Suspect]
     Active Substance: EVOLOCUMAB
     Route: 058

REACTIONS (3)
  - Injection site pain [Unknown]
  - Device difficult to use [Unknown]
  - Product communication issue [Unknown]

NARRATIVE: CASE EVENT DATE: 20250205
